FAERS Safety Report 24882545 (Version 1)
Quarter: 2025Q1

REPORT INFORMATION
  Report Type: Spontaneous
  Country: RO (occurrence: RO)
  Receive Date: 20250124
  Receipt Date: 20250124
  Transmission Date: 20250408
  Serious: Yes (Other)
  Sender: ARGENX BVBA
  Company Number: RO-Medison-000905

PATIENT

DRUGS (1)
  1. VYVGART [Suspect]
     Active Substance: EFGARTIGIMOD ALFA-FCAB
     Indication: Myasthenia gravis
     Route: 065
     Dates: start: 20240409

REACTIONS (1)
  - Breast cancer in situ [Not Recovered/Not Resolved]

NARRATIVE: CASE EVENT DATE: 20241201
